FAERS Safety Report 16357734 (Version 2)
Quarter: 2019Q3

REPORT INFORMATION
  Report Type: Spontaneous
  Country: IT (occurrence: IT)
  Receive Date: 20190527
  Receipt Date: 20190710
  Transmission Date: 20191004
  Serious: Yes (Other)
  Sender: FDA-Public Use
  Company Number: PHHY2019IT118750

PATIENT
  Age: 22 Year
  Sex: Male

DRUGS (2)
  1. IBUPROFEN. [Suspect]
     Active Substance: IBUPROFEN
     Indication: PAIN IN EXTREMITY
     Dosage: 2400 MG, UNK (TOTAL)
     Route: 048
     Dates: start: 20190302, end: 20190303
  2. CETIRIZINE [Suspect]
     Active Substance: CETIRIZINE HYDROCHLORIDE
     Indication: PAIN IN EXTREMITY
     Dosage: 320 MG, UNK (TOTAL)
     Route: 048
     Dates: start: 20190302, end: 20190303

REACTIONS (4)
  - Gastrointestinal hypomotility [Recovering/Resolving]
  - Drug abuse [Recovering/Resolving]
  - Micturition disorder [Recovering/Resolving]
  - Dry mouth [Recovering/Resolving]

NARRATIVE: CASE EVENT DATE: 20190302
